FAERS Safety Report 9196282 (Version 1)
Quarter: 2013Q1

REPORT INFORMATION
  Report Type: Spontaneous
  Country: PR (occurrence: PR)
  Receive Date: 20130328
  Receipt Date: 20130328
  Transmission Date: 20140127
  Serious: Yes (Life-Threatening, Hospitalization)
  Sender: FDA-Public Use
  Company Number: PR-MYLANLABS-2013S1005935

PATIENT
  Age: 71 Year
  Sex: Male

DRUGS (3)
  1. COTRIMOXAZOLE [Suspect]
     Indication: CELLULITIS
     Route: 048
  2. LISINOPRIL [Suspect]
     Indication: BLOOD PRESSURE MANAGEMENT
     Dosage: 40 MG DAILY
     Route: 065
  3. METOPROLOL [Suspect]
     Indication: BLOOD PRESSURE MANAGEMENT
     Route: 065

REACTIONS (3)
  - Hyperkalaemia [Recovered/Resolved]
  - Unresponsive to stimuli [Recovered/Resolved]
  - Atrioventricular block complete [Recovered/Resolved]
